FAERS Safety Report 15198043 (Version 1)
Quarter: 2018Q3

REPORT INFORMATION
  Report Type: Spontaneous
  Country: US (occurrence: US)
  Receive Date: 20180725
  Receipt Date: 20180725
  Transmission Date: 20181010
  Serious: No
  Sender: FDA-Public Use
  Company Number: US-ABBVIE-18P-163-2222151-00

PATIENT
  Sex: Female

DRUGS (1)
  1. SYNTHROID [Suspect]
     Active Substance: LEVOTHYROXINE SODIUM
     Indication: HYPOTHYROIDISM
     Route: 048
     Dates: end: 2018

REACTIONS (6)
  - Fatigue [Unknown]
  - Vomiting [Unknown]
  - Drug administration error [Not Recovered/Not Resolved]
  - Alopecia [Unknown]
  - Blood pressure increased [Recovering/Resolving]
  - Weight increased [Unknown]
